FAERS Safety Report 15130883 (Version 3)
Quarter: 2018Q3

REPORT INFORMATION
  Report Type: Spontaneous
  Country: IT (occurrence: IT)
  Receive Date: 20180711
  Receipt Date: 20180925
  Transmission Date: 20181010
  Serious: Yes (Congenital Anomaly)
  Sender: FDA-Public Use
  Company Number: IT-ELI_LILLY_AND_COMPANY-IT201807001322

PATIENT
  Sex: Female
  Weight: 3 kg

DRUGS (8)
  1. HUMALOG [Suspect]
     Active Substance: INSULIN LISPRO
     Indication: DIABETES MELLITUS
     Dosage: 28 IU, DAILY
     Route: 064
  2. LANTUS [Suspect]
     Active Substance: INSULIN GLARGINE
     Indication: DIABETES MELLITUS
     Dosage: 16 IU, DAILY
     Route: 064
  3. PROGEFFIK [Concomitant]
     Active Substance: PROGESTERONE
     Indication: PREGNANCY
     Dosage: 200 MG, UNKNOWN
     Route: 064
  4. PROGEFFIK [Concomitant]
     Active Substance: PROGESTERONE
     Indication: PREGNANCY
     Dosage: 200 MG, UNKNOWN
     Route: 064
  5. HUMALOG [Suspect]
     Active Substance: INSULIN LISPRO
     Indication: DIABETES MELLITUS
     Dosage: 28 IU, DAILY
     Route: 064
  6. LANTUS [Suspect]
     Active Substance: INSULIN GLARGINE
     Indication: DIABETES MELLITUS
     Dosage: 16 IU, DAILY
     Route: 064
  7. PREFOLIC [Concomitant]
     Active Substance: LEUCOVORIN CALCIUM
     Indication: PREGNANCY
     Dosage: 15 MG, UNKNOWN
     Route: 064
  8. PREFOLIC [Concomitant]
     Active Substance: LEUCOVORIN CALCIUM
     Indication: PREGNANCY
     Dosage: 15 MG, UNKNOWN
     Route: 064

REACTIONS (2)
  - Kidney malformation [Not Recovered/Not Resolved]
  - Foetal exposure during pregnancy [Recovered/Resolved]
